FAERS Safety Report 19140921 (Version 2)
Quarter: 2021Q3

REPORT INFORMATION
  Report Type: Report from Study
  Country: US (occurrence: US)
  Receive Date: 20210415
  Receipt Date: 20210706
  Transmission Date: 20211014
  Serious: Yes (Other)
  Sender: FDA-Public Use
  Company Number: US-EMD SERONO-9231091

PATIENT
  Sex: Female

DRUGS (2)
  1. MAVENCLAD [Suspect]
     Active Substance: CLADRIBINE
     Indication: MULTIPLE SCLEROSIS
     Dosage: YEAR ONE CYCLE ONE THERAPY
     Route: 048
     Dates: start: 20200709
  2. MAVENCLAD [Suspect]
     Active Substance: CLADRIBINE
     Dosage: YEAR ONE CYCLE TWO THERAPY
     Route: 048

REACTIONS (11)
  - Headache [Recovered/Resolved]
  - Condition aggravated [Unknown]
  - Nausea [Recovered/Resolved]
  - Abdominal discomfort [Recovered/Resolved]
  - Thrombosis [Unknown]
  - Poor peripheral circulation [Unknown]
  - Peripheral swelling [Unknown]
  - Skin discolouration [Unknown]
  - Feeling abnormal [Recovered/Resolved]
  - Dyspepsia [Recovered/Resolved]
  - Chills [Recovered/Resolved]
